FAERS Safety Report 5370685-4 (Version None)
Quarter: 2007Q2

REPORT INFORMATION
  Report Type: 
  Country: None (occurrence: None)
  Receive Date: 20070626
  Receipt Date: 20070625
  Transmission Date: 20071010
  Serious: Yes (Disabling)
  Sender: FDA-Public Use
  Company Number: FR-SANOFI-SYNTHELABO-A01200706766

PATIENT
  Age: 48 Year
  Sex: Male

DRUGS (2)
  1. BICALUTAMIDE [Suspect]
     Dosage: UNK
  2. ELIGARD [Suspect]
     Indication: PROSTATE CANCER
     Route: 058
     Dates: start: 20060621, end: 20061201

REACTIONS (3)
  - ARTHRALGIA [None]
  - HOT FLUSH [None]
  - MYALGIA [None]
